FAERS Safety Report 24944028 (Version 5)
Quarter: 2025Q2

REPORT INFORMATION
  Report Type: Spontaneous
  Country: US (occurrence: US)
  Receive Date: 20250207
  Receipt Date: 20250420
  Transmission Date: 20250716
  Serious: Yes (Hospitalization, Other)
  Sender: SANOFI AVENTIS
  Company Number: US-SA-2025SA038698

PATIENT
  Age: 46 Year
  Sex: Female

DRUGS (4)
  1. DUPIXENT [Suspect]
     Active Substance: DUPILUMAB
     Indication: Asthma
     Dosage: 300 MG, QOW
     Route: 058
     Dates: start: 20250205
  2. BREO ELLIPTA [Concomitant]
     Active Substance: FLUTICASONE FUROATE\VILANTEROL TRIFENATATE
  3. ALBUTEROL [Concomitant]
     Active Substance: ALBUTEROL
  4. CELLCEPT [Concomitant]
     Active Substance: MYCOPHENOLATE MOFETIL

REACTIONS (6)
  - Pneumonia [Not Recovered/Not Resolved]
  - COVID-19 [Not Recovered/Not Resolved]
  - Cough [Not Recovered/Not Resolved]
  - Injection site pain [Recovered/Resolved]
  - Asthma [Not Recovered/Not Resolved]
  - Incorrect dose administered [Unknown]

NARRATIVE: CASE EVENT DATE: 20250101
